FAERS Safety Report 9846553 (Version 1)
Quarter: 2014Q1

REPORT INFORMATION
  Report Type: Spontaneous
  Country: US (occurrence: US)
  Receive Date: 20140127
  Receipt Date: 20140127
  Transmission Date: 20141002
  Serious: Yes (Hospitalization)
  Sender: FDA-Public Use
  Company Number: US-GLAXOSMITHKLINE-A1056932A

PATIENT
  Age: 63 Year
  Sex: Female

DRUGS (8)
  1. ADVAIR [Suspect]
     Indication: ASTHMA
     Dosage: 1PUFF TWICE PER DAY
     Route: 055
     Dates: start: 2009
  2. CALCIUM [Concomitant]
  3. BLOOD PRESSURE MEDICATION [Concomitant]
  4. VITAMIN [Concomitant]
  5. VENTOLIN [Concomitant]
  6. UNSPECIFIED MEDICATION [Concomitant]
  7. POTASSIUM [Concomitant]
  8. UNSPECIFIED MEDICATION [Concomitant]

REACTIONS (13)
  - Hip arthroplasty [Not Recovered/Not Resolved]
  - Hip fracture [Not Recovered/Not Resolved]
  - Femur fracture [Not Recovered/Not Resolved]
  - Ankle fracture [Not Recovered/Not Resolved]
  - Spinal fracture [Not Recovered/Not Resolved]
  - Foot fracture [Not Recovered/Not Resolved]
  - Foot fracture [Not Recovered/Not Resolved]
  - Hand fracture [Not Recovered/Not Resolved]
  - Femur fracture [Not Recovered/Not Resolved]
  - Hypokalaemia [Not Recovered/Not Resolved]
  - Vertigo [Not Recovered/Not Resolved]
  - Appendicitis [Not Recovered/Not Resolved]
  - Loss of consciousness [Not Recovered/Not Resolved]
